FAERS Safety Report 5961605-X (Version None)
Quarter: 2008Q4

REPORT INFORMATION
  Report Type: 
  Country: None (occurrence: None)
  Receive Date: 20081121
  Receipt Date: 20081106
  Transmission Date: 20090506
  Serious: Yes (Hospitalization, Other)
  Sender: FDA-Public Use
  Company Number: PHHY2008NZ24477

PATIENT
  Sex: Female

DRUGS (9)
  1. CLOZARIL [Suspect]
     Indication: SCHIZOPHRENIA
     Dosage: UNK
     Dates: end: 20080601
  2. CLOZARIL [Suspect]
     Dosage: 300 MG DAILY
     Dates: start: 20080915
  3. PENTASA [Concomitant]
     Dosage: 500 MG, TID
  4. OMEPRAZOLE [Concomitant]
     Dosage: 40 MG DAILY
  5. EPILIM [Concomitant]
     Dosage: 1G BD
  6. QUINAPRIL [Concomitant]
     Dosage: 10 MG DAILY
  7. METFORMIN HCL [Concomitant]
     Dosage: 800 MG, TID
  8. CITALOPRAM HYDROBROMIDE [Concomitant]
     Dosage: 20 MG DAILY
  9. GLICAZIDE [Concomitant]
     Dosage: 80 MG DAILY

REACTIONS (8)
  - AGRANULOCYTOSIS [None]
  - ENTEROCOLITIS HAEMORRHAGIC [None]
  - GASTROINTESTINAL HAEMORRHAGE [None]
  - HAEMATEMESIS [None]
  - NEUTROPENIA [None]
  - NEUTROPHIL COUNT DECREASED [None]
  - RECTAL HAEMORRHAGE [None]
  - WHITE BLOOD CELL COUNT DECREASED [None]
